FAERS Safety Report 10003795 (Version 1)
Quarter: 2014Q1

REPORT INFORMATION
  Report Type: Spontaneous
  Country: US (occurrence: US)
  Receive Date: 20140312
  Receipt Date: 20140312
  Transmission Date: 20141002
  Serious: No
  Sender: FDA-Public Use
  Company Number: US-ABBVIE-14P-163-1193942-00

PATIENT
  Sex: Female

DRUGS (1)
  1. DEPAKOTE SPRINKLE [Suspect]
     Indication: PRODUCT USED FOR UNKNOWN INDICATION
     Route: 048

REACTIONS (2)
  - Therapy change [Unknown]
  - Therapy change [Unknown]
